FAERS Safety Report 23561863 (Version 1)
Quarter: 2024Q1

REPORT INFORMATION
  Report Type: Report from Study
  Country: US (occurrence: US)
  Receive Date: 20240225
  Receipt Date: 20240225
  Transmission Date: 20240410
  Serious: Yes (Other)
  Sender: FDA-Public Use
  Company Number: US-ABBVIE-5651572

PATIENT
  Sex: Female

DRUGS (1)
  1. RINVOQ [Suspect]
     Active Substance: UPADACITINIB
     Indication: Dermatitis atopic
     Route: 048

REACTIONS (6)
  - Carpal tunnel syndrome [Unknown]
  - Autoimmune disorder [Unknown]
  - Illness [Unknown]
  - Lower limb fracture [Unknown]
  - Unevaluable event [Unknown]
  - Mental disorder [Unknown]
